FAERS Safety Report 4714496-9 (Version None)
Quarter: 2005Q3

REPORT INFORMATION
  Report Type: 
  Country: None (occurrence: None)
  Receive Date: 20050705
  Receipt Date: 20050425
  Transmission Date: 20060218
  Serious: Yes (Other)
  Sender: FDA-Public Use
  Company Number: 2005-0008283

PATIENT
  Age: 45 Year
  Sex: Male
  Weight: 63.5036 kg

DRUGS (6)
  1. VIREAD [Suspect]
     Indication: ACQUIRED IMMUNODEFICIENCY SYNDROME
     Dosage: 300 MG, 1 IN 1 D, ORAL
     Route: 048
     Dates: start: 20030916, end: 20040913
  2. VIDEX [Concomitant]
  3. VIRACEPT [Concomitant]
  4. NEXIUM [Concomitant]
  5. ZESTRIL [Concomitant]
  6. BACTRIM [Concomitant]

REACTIONS (2)
  - FANCONI SYNDROME ACQUIRED [None]
  - PANCREATITIS [None]
